FAERS Safety Report 15823268 (Version 1)
Quarter: 2019Q1

REPORT INFORMATION
  Report Type: Spontaneous
  Country: US (occurrence: US)
  Receive Date: 20190114
  Receipt Date: 20190114
  Transmission Date: 20190417
  Serious: No
  Sender: FDA-Public Use
  Company Number: US-TEVA-2018-US-993851

PATIENT
  Age: 5 Year
  Sex: Female

DRUGS (2)
  1. INSULIN [Concomitant]
     Active Substance: INSULIN NOS
  2. GRISEOFULVIN. [Suspect]
     Active Substance: GRISEOFULVIN
     Indication: TINEA INFECTION
     Dosage: DOSE STRENGTH= 125MG/5ML
     Route: 065
     Dates: start: 201812

REACTIONS (1)
  - Blood glucose increased [Unknown]
